FAERS Safety Report 6874687-8 (Version None)
Quarter: 2010Q3

REPORT INFORMATION
  Report Type: 
  Country: None (occurrence: None)
  Receive Date: 20100722
  Receipt Date: 20100712
  Transmission Date: 20110219
  Serious: Yes (Other)
  Sender: FDA-Public Use
  Company Number: B0666030A

PATIENT
  Age: 56 Year
  Sex: Male

DRUGS (3)
  1. DIGOXIN [Suspect]
     Indication: ATRIAL FIBRILLATION
  2. METOCLOPRAMIDE [Suspect]
     Dosage: INTRAVENOUS
     Route: 042
  3. AMIODARONE HCL [Concomitant]

REACTIONS (5)
  - ATRIAL FIBRILLATION [None]
  - BRADYARRHYTHMIA [None]
  - CARDIAC ARREST [None]
  - POSTOPERATIVE ILEUS [None]
  - ULCER HAEMORRHAGE [None]
